FAERS Safety Report 5637297-6 (Version None)
Quarter: 2008Q1

REPORT INFORMATION
  Report Type: 
  Country: None (occurrence: None)
  Receive Date: 20080225
  Receipt Date: 20080219
  Transmission Date: 20080703
  Serious: Yes (Death, Hospitalization)
  Sender: FDA-Public Use
  Company Number: DE-PFIZER INC-2007006233

PATIENT
  Sex: Male
  Weight: 62 kg

DRUGS (2)
  1. MARAVIROC [Suspect]
     Indication: HIV TEST POSITIVE
     Route: 048
  2. PEMETREXED [Suspect]

REACTIONS (4)
  - ANAEMIA [None]
  - METASTATIC BRONCHIAL CARCINOMA [None]
  - MUCOSAL INFLAMMATION [None]
  - THROMBOCYTOPENIA [None]
